FAERS Safety Report 9416389 (Version 2)
Quarter: 2013Q3

REPORT INFORMATION
  Report Type: Spontaneous
  Country: US (occurrence: US)
  Receive Date: 20130724
  Receipt Date: 20130813
  Transmission Date: 20140515
  Serious: No
  Sender: FDA-Public Use
  Company Number: US-PFIZER INC-2013215056

PATIENT
  Age: 55 Year
  Sex: Female
  Weight: 61.22 kg

DRUGS (6)
  1. XELJANZ [Suspect]
     Indication: ARTHRITIS
     Dosage: 5 MG (1 TABLET), 2X/DAY
     Route: 048
  2. LODINE [Concomitant]
     Dosage: 200 MG, UNK
     Route: 048
  3. SYNTHROID [Concomitant]
     Dosage: 25 UG, UNK
     Route: 048
  4. BONIVA [Concomitant]
     Dosage: 2.5 MG, UNK
     Route: 048
  5. VALTREX [Concomitant]
     Dosage: 500 MG, UNK
     Route: 048
  6. NORCO [Concomitant]
     Dosage: 7.5-325, UNK
     Route: 048

REACTIONS (1)
  - Drug ineffective [Unknown]
